FAERS Safety Report 12340810 (Version 3)
Quarter: 2016Q2

REPORT INFORMATION
  Report Type: Report from Study
  Country: GR (occurrence: GR)
  Receive Date: 20160506
  Receipt Date: 20160630
  Transmission Date: 20160815
  Serious: Yes (Other)
  Sender: FDA-Public Use
  Company Number: GR-ROCHE-1752525

PATIENT
  Sex: Female
  Weight: 64 kg

DRUGS (9)
  1. ROACTEMRA [Suspect]
     Active Substance: TOCILIZUMAB
     Indication: RHEUMATOID ARTHRITIS
     Route: 058
     Dates: start: 20151116, end: 20160422
  2. DIOVAN [Concomitant]
     Active Substance: VALSARTAN
     Dosage: 80
     Route: 065
  3. METHOTREXATE [Concomitant]
     Active Substance: METHOTREXATE
  4. SALOSPIR [Concomitant]
     Active Substance: ASPIRIN
     Dosage: 160
     Route: 065
  5. SOLOSA [Concomitant]
     Active Substance: GLIMEPIRIDE
     Dosage: 1X2
     Route: 065
  6. ZURCAZOL [Concomitant]
     Active Substance: PANTOPRAZOLE SODIUM
  7. GLUCOPHAGE [Concomitant]
     Active Substance: METFORMIN HYDROCHLORIDE
  8. SOTALOL. [Concomitant]
     Active Substance: SOTALOL
  9. FILICINE [Concomitant]

REACTIONS (4)
  - Hypertension [Recovered/Resolved]
  - Palpitations [Recovered/Resolved]
  - Blood glucose decreased [Recovered/Resolved]
  - Off label use [Unknown]
